FAERS Safety Report 5030501-7 (Version None)
Quarter: 2006Q2

REPORT INFORMATION
  Report Type: 
  Country: None (occurrence: None)
  Receive Date: 20060620
  Receipt Date: 20060602
  Transmission Date: 20061013
  Serious: Yes (Other)
  Sender: FDA-Public Use
  Company Number: JP-ABBOTT-06P-087-0334932-00

PATIENT
  Age: 70 Year
  Sex: Male

DRUGS (6)
  1. DEPAKENE [Suspect]
     Indication: POST-TRAUMATIC EPILEPSY
     Route: 048
     Dates: start: 19940101, end: 20060425
  2. DEPAKENE [Suspect]
     Dates: start: 20060429, end: 20060502
  3. DEPAKENE [Suspect]
     Dates: start: 20060503
  4. CLOBAZAM [Interacting]
     Indication: POST-TRAUMATIC EPILEPSY
     Route: 048
     Dates: start: 20060124, end: 20060425
  5. CARBOCISTEINE [Concomitant]
     Indication: DRUG USE FOR UNKNOWN INDICATION
     Route: 065
  6. CLEANAL [Concomitant]
     Indication: DRUG USE FOR UNKNOWN INDICATION
     Route: 065

REACTIONS (7)
  - ASTHENIA [None]
  - BLOOD CREATINE PHOSPHOKINASE INCREASED [None]
  - CONVULSION [None]
  - DIFFICULTY IN WALKING [None]
  - DRUG INTERACTION [None]
  - DRUG LEVEL INCREASED [None]
  - MOVEMENT DISORDER [None]
